FAERS Safety Report 14612729 (Version 1)
Quarter: 2018Q1

REPORT INFORMATION
  Report Type: Report from Study
  Country: GB (occurrence: GB)
  Receive Date: 20180308
  Receipt Date: 20180308
  Transmission Date: 20180509
  Serious: Yes (Other)
  Sender: FDA-Public Use
  Company Number: GB-AMGEN-GBRSL2018029621

PATIENT
  Sex: Male

DRUGS (3)
  1. IRON [Concomitant]
     Active Substance: IRON
     Dosage: UNK UNK, QWK
     Route: 042
  2. ARANESP [Suspect]
     Active Substance: DARBEPOETIN ALFA
     Dosage: 40 MCG, QMO
     Route: 065
  3. ARANESP [Suspect]
     Active Substance: DARBEPOETIN ALFA
     Indication: PRODUCT USED FOR UNKNOWN INDICATION
     Dosage: 40 MCG, QWK
     Route: 065

REACTIONS (2)
  - Intentional product misuse [Unknown]
  - Diabetes mellitus [Unknown]
